FAERS Safety Report 9659312 (Version 3)
Quarter: 2014Q1

REPORT INFORMATION
  Report Type: Report from Study
  Country: DE (occurrence: DE)
  Receive Date: 20131031
  Receipt Date: 20140312
  Transmission Date: 20141002
  Serious: Yes (Death, Hospitalization)
  Sender: FDA-Public Use
  Company Number: DE-AMGEN-DEUCT2013076884

PATIENT
  Age: 72 Year
  Sex: Female

DRUGS (8)
  1. ETANERCEPT [Suspect]
     Indication: PRODUCT USED FOR UNKNOWN INDICATION
     Dosage: 25 MG, WEEKLY
     Route: 065
     Dates: start: 20130903, end: 201309
  2. NIFICAL [Concomitant]
     Dosage: UNK
  3. ENALAPRIL [Concomitant]
     Dosage: UNK
  4. BISOHEXAL [Concomitant]
     Dosage: UNK
  5. SYMBICORT [Concomitant]
     Dosage: UNK
  6. PANTOPRAZOL [Concomitant]
     Dosage: UNK
  7. APIDRA [Concomitant]
     Dosage: UNK
  8. LANTUS [Concomitant]
     Dosage: UNK

REACTIONS (1)
  - Sudden cardiac death [Fatal]
